FAERS Safety Report 8125758-X (Version None)
Quarter: 2012Q1

REPORT INFORMATION
  Report Type: 
  Country: None (occurrence: None)
  Receive Date: 20120206
  Receipt Date: 20120125
  Transmission Date: 20120608
  Serious: Yes (Disabling, Other)
  Sender: FDA-Public Use
  Company Number: 7109263

PATIENT
  Sex: Female

DRUGS (4)
  1. BISOPROLOL FUMARATE [Concomitant]
  2. NATURAL PRODUCT (ALL OTHER THERAPEUTIC PRODUCTS) [Concomitant]
  3. SULPHUR (SULFUR) (SULFUR) [Concomitant]
  4. LEVOTHYROXINE SODIUM [Suspect]
     Indication: PRODUCT USED FOR UNKNOWN INDICATION
     Dosage: 175 MCG, 150 MCG, 125 MCG
     Dates: start: 20120124

REACTIONS (8)
  - NERVOUSNESS [None]
  - ASTHENIA [None]
  - MENTAL DISORDER [None]
  - PALPITATIONS [None]
  - ANGINA PECTORIS [None]
  - PAIN IN EXTREMITY [None]
  - INSOMNIA [None]
  - DIARRHOEA [None]
